FAERS Safety Report 11301920 (Version 1)
Quarter: 2015Q3

REPORT INFORMATION
  Report Type: Spontaneous
  Country: US (occurrence: US)
  Receive Date: 20150722
  Receipt Date: 20150722
  Transmission Date: 20151125
  Serious: No
  Sender: FDA-Public Use
  Company Number: US-ELI_LILLY_AND_COMPANY-US200907006095

PATIENT
  Sex: Female

DRUGS (3)
  1. EVISTA [Suspect]
     Active Substance: RALOXIFENE HYDROCHLORIDE
     Dosage: 60 MG, UNKNOWN
     Route: 065
     Dates: start: 20090403, end: 20090626
  2. GENISTEIN [Concomitant]
     Active Substance: GENISTEIN
     Dosage: UNK, UNKNOWN
     Route: 065
  3. CITRACAL [Concomitant]
     Active Substance: CALCIUM CITRATE
     Dosage: UNK, UNKNOWN
     Route: 065

REACTIONS (8)
  - Influenza like illness [Unknown]
  - Muscle spasms [Unknown]
  - Hyperhidrosis [Unknown]
  - Arthralgia [Unknown]
  - Pyrexia [Unknown]
  - Dry eye [Unknown]
  - Vision blurred [Unknown]
  - Fatigue [Unknown]
